FAERS Safety Report 17310724 (Version 1)
Quarter: 2020Q1

REPORT INFORMATION
  Report Type: Spontaneous
  Country: US (occurrence: US)
  Receive Date: 20200123
  Receipt Date: 20200123
  Transmission Date: 20200409
  Serious: Yes (Other)
  Sender: FDA-Public Use
  Company Number: US-ROCHE-2298503

PATIENT
  Age: 42 Year
  Sex: Female
  Weight: 108.96 kg

DRUGS (2)
  1. RITUXAN [Suspect]
     Active Substance: RITUXIMAB
     Indication: GLOMERULONEPHRITIS MEMBRANOUS
     Route: 042
     Dates: start: 201606, end: 201706
  2. RITUXAN [Suspect]
     Active Substance: RITUXIMAB
     Dosage: LAST DOSE OF RITUXAN WAS IN JUN-2017
     Route: 042

REACTIONS (1)
  - Pneumonia [Unknown]

NARRATIVE: CASE EVENT DATE: 201712
